FAERS Safety Report 23817999 (Version 1)
Quarter: 2024Q2

REPORT INFORMATION
  Report Type: Other
  Country: US (occurrence: None)
  Receive Date: 20240506
  Receipt Date: 20240506
  Transmission Date: 20240715
  Serious: Yes (Hospitalization, Other)
  Sender: FDA-Public Use
  Company Number: US-ROCHE-3268130

PATIENT
  Age: 59 Year
  Sex: Male
  Weight: 115.77 kg

DRUGS (12)
  1. OCREVUS [Suspect]
     Active Substance: OCRELIZUMAB
     Indication: Relapsing-remitting multiple sclerosis
     Dosage: DATE OF TREATMENT: 06/OCT/2020, 06/APR/2021, 19/NOV/2021
     Route: 042
     Dates: start: 20200318, end: 20200402
  2. OCREVUS [Suspect]
     Active Substance: OCRELIZUMAB
     Dosage: DATE OF TREATMENT: 18/MAR/2020, 02/APR/2020, 06/OCT/2020, 06/APR/2021, 19/NOV/2021, 23/NOV/2022, 20/
     Route: 042
     Dates: start: 2019
  3. OCREVUS [Suspect]
     Active Substance: OCRELIZUMAB
     Route: 042
     Dates: start: 20230202
  4. TIZANIDINE [Concomitant]
     Active Substance: TIZANIDINE
     Indication: Hypoaesthesia
     Dosage: YES
     Route: 048
     Dates: start: 202207
  5. LYRICA [Concomitant]
     Active Substance: PREGABALIN
     Indication: Hypoaesthesia
     Dosage: YES
     Route: 048
     Dates: start: 202207
  6. LYRICA [Concomitant]
     Active Substance: PREGABALIN
     Indication: Muscular weakness
  7. METOPROLOL [Concomitant]
     Active Substance: METOPROLOL
     Indication: Hypertension
     Dosage: YES
     Route: 048
     Dates: start: 2003
  8. FLOMAX [Concomitant]
     Active Substance: TAMSULOSIN HYDROCHLORIDE
     Dosage: YES
     Route: 048
     Dates: start: 202201
  9. GABAPENTIN [Concomitant]
     Active Substance: GABAPENTIN
     Indication: Hypoaesthesia
     Dosage: NO, TOTAL 1800 MG DAILY
     Route: 048
     Dates: start: 2004, end: 202207
  10. GABAPENTIN [Concomitant]
     Active Substance: GABAPENTIN
     Indication: Muscular weakness
  11. GLIPIZIDE [Concomitant]
     Active Substance: GLIPIZIDE
     Route: 048
  12. METFORMIN [Concomitant]
     Active Substance: METFORMIN HYDROCHLORIDE
     Route: 048
     Dates: start: 202111

REACTIONS (14)
  - Spinal fracture [Recovered/Resolved]
  - Fall [Unknown]
  - Hemiparesis [Not Recovered/Not Resolved]
  - Salivary gland cancer [Recovered/Resolved]
  - Pain in extremity [Not Recovered/Not Resolved]
  - Malaise [Not Recovered/Not Resolved]
  - Balance disorder [Not Recovered/Not Resolved]
  - Fatigue [Not Recovered/Not Resolved]
  - Blood glucose increased [Recovered/Resolved]
  - Dysstasia [Unknown]
  - Loss of consciousness [Recovered/Resolved]
  - Seizure [Unknown]
  - Intervertebral disc protrusion [Recovered/Resolved]
  - Urinary tract infection [Recovered/Resolved]

NARRATIVE: CASE EVENT DATE: 20191101
